FAERS Safety Report 19679830 (Version 1)
Quarter: 2021Q3

REPORT INFORMATION
  Report Type: Report from Study
  Country: IT (occurrence: IT)
  Receive Date: 20210810
  Receipt Date: 20210810
  Transmission Date: 20211014
  Serious: Yes (Other)
  Sender: FDA-Public Use
  Company Number: IT-ACCORD-224911

PATIENT
  Age: 36 Year
  Sex: Female
  Weight: 116 kg

DRUGS (1)
  1. CARBOPLATIN. [Suspect]
     Active Substance: CARBOPLATIN
     Indication: BREAST CANCER METASTATIC
     Route: 042
     Dates: start: 20201111

REACTIONS (2)
  - Thrombocytopenia [Recovering/Resolving]
  - Haemoglobinaemia [Unknown]

NARRATIVE: CASE EVENT DATE: 20210224
